FAERS Safety Report 7754578-0 (Version None)
Quarter: 2011Q3

REPORT INFORMATION
  Report Type: 
  Country: None (occurrence: None)
  Receive Date: 20110915
  Receipt Date: 20110901
  Transmission Date: 20111222
  Serious: Yes (Other)
  Sender: FDA-Public Use
  Company Number: PHHY2011JP78642

PATIENT
  Sex: Female

DRUGS (6)
  1. ALDACTONE [Concomitant]
     Dosage: 25 MG, UNK
     Route: 048
     Dates: start: 20090511
  2. MICARDIS [Concomitant]
     Dosage: 40 MG, UNK
     Route: 048
     Dates: start: 20090413, end: 20090604
  3. BUFFERIN [Concomitant]
     Dosage: 81 MG, UNK
     Route: 048
     Dates: start: 20090413
  4. TRICHLORMETHIAZIDE [Concomitant]
     Dosage: 2 MG, UNK
     Route: 048
     Dates: start: 20090413
  5. LASIX [Concomitant]
     Dosage: 40 MG, UNK
     Route: 048
     Dates: start: 20090413
  6. DIOVAN HCT [Suspect]
     Indication: HYPERTENSION
     Dosage: 1 DF, QD
     Route: 048
     Dates: start: 20090605

REACTIONS (3)
  - BLOOD PRESSURE DECREASED [None]
  - BLOOD URIC ACID INCREASED [None]
  - GLYCOSYLATED HAEMOGLOBIN INCREASED [None]
